FAERS Safety Report 20803093 (Version 1)
Quarter: 2022Q2

REPORT INFORMATION
  Report Type: Spontaneous
  Country: US (occurrence: US)
  Receive Date: 20220509
  Receipt Date: 20220509
  Transmission Date: 20220721
  Serious: No
  Sender: FDA-Public Use
  Company Number: US-AMNEAL PHARMACEUTICALS-2022-AMRX-00205

PATIENT
  Sex: Male

DRUGS (1)
  1. BUPRENORPHINE TRANSDERMAL SYSTEM [Suspect]
     Active Substance: BUPRENORPHINE
     Indication: Product used for unknown indication
     Dosage: 1 DOSAGE FORM, 1 /WEEK, PATCH WEEKLY
     Route: 062

REACTIONS (3)
  - Device leakage [Unknown]
  - Product adhesion issue [Unknown]
  - No adverse event [Unknown]
